FAERS Safety Report 4486170-8 (Version None)
Quarter: 2004Q4

REPORT INFORMATION
  Report Type: 
  Country: None (occurrence: None)
  Receive Date: 20041021
  Receipt Date: 20041007
  Transmission Date: 20050328
  Serious: Yes (Hospitalization)
  Sender: FDA-Public Use
  Company Number: 2004-DE-05194DE

PATIENT
  Age: 19 Month
  Sex: Female

DRUGS (1)
  1. CATAPRES [Suspect]
     Dosage: 0.075 MG (0.075 MG, 1 IN 1 ONCE)  PO
     Route: 048

REACTIONS (3)
  - ACCIDENTAL EXPOSURE [None]
  - APATHY [None]
  - SOMNOLENCE [None]
